FAERS Safety Report 13376592 (Version 1)
Quarter: 2017Q1

REPORT INFORMATION
  Report Type: Spontaneous
  Country: US (occurrence: US)
  Receive Date: 20170327
  Receipt Date: 20170327
  Transmission Date: 20170429
  Serious: No
  Sender: FDA-Public Use
  Company Number: None

PATIENT
  Age: 55 Year
  Sex: Female
  Weight: 75.6 kg

DRUGS (9)
  1. VITAMIN D [Concomitant]
     Active Substance: CHOLECALCIFEROL
  2. LISIOPRIL [Concomitant]
  3. BUMETANIDE. [Concomitant]
     Active Substance: BUMETANIDE
  4. POTASSIUM CHLORIDE ER 1500 MG [Suspect]
     Active Substance: POTASSIUM CHLORIDE
     Indication: CARDIAC FAILURE
     Dosage: 1 TABLET 5 TIMES A DAY; ORAL?
     Route: 048
     Dates: start: 20170105, end: 20170323
  5. SOTALOL. [Concomitant]
     Active Substance: SOTALOL
  6. SPIRINOLACTONE [Concomitant]
  7. METOPROLOL. [Concomitant]
     Active Substance: METOPROLOL
  8. MAGNESIUM [Concomitant]
     Active Substance: MAGNESIUM
  9. WARFARIN [Concomitant]
     Active Substance: WARFARIN

REACTIONS (4)
  - Product substitution issue [None]
  - Myalgia [None]
  - Arrhythmia [None]
  - Muscle spasms [None]

NARRATIVE: CASE EVENT DATE: 20170105
